FAERS Safety Report 9380806 (Version 3)
Quarter: 2014Q1

REPORT INFORMATION
  Report Type: Spontaneous
  Country: US (occurrence: US)
  Receive Date: 20130702
  Receipt Date: 20140304
  Transmission Date: 20141002
  Serious: Yes (Hospitalization)
  Sender: FDA-Public Use
  Company Number: US-B.I. PHARMACEUTICALS,INC./RIDGEFIELD-2013-BI-18746BP

PATIENT
  Sex: Female
  Weight: 63.5 kg

DRUGS (11)
  1. PRADAXA [Suspect]
     Indication: ATRIAL FIBRILLATION
     Dosage: 300 MG
     Route: 065
     Dates: start: 20110101, end: 20120828
  2. LEVOTHYROXINE [Concomitant]
     Dosage: 137 MCG
     Route: 048
  3. ENABLEX [Concomitant]
     Dosage: 7.5 MG
     Route: 048
  4. FERROUS SULFATE [Concomitant]
     Route: 048
  5. OCUVITE [Concomitant]
     Route: 048
  6. TYLENOL [Concomitant]
     Route: 048
  7. MAGNESIUM OXIDE [Concomitant]
     Dosage: 400 MG
     Route: 048
  8. POTASSIUM CHLORIDE [Concomitant]
     Dosage: 20 MEQ
     Route: 048
  9. LASIX [Concomitant]
     Dosage: 20 MG
     Route: 048
     Dates: start: 200301
  10. ASPIRIN [Concomitant]
     Dosage: 81 MG
     Route: 048
     Dates: start: 200301
  11. LIPITOR [Concomitant]
     Dosage: 20 MG
     Route: 048
     Dates: start: 200301

REACTIONS (7)
  - Gastrointestinal haemorrhage [Recovered/Resolved]
  - Nausea [Recovered/Resolved]
  - Haematemesis [Recovered/Resolved]
  - Haemorrhagic anaemia [Unknown]
  - Coagulopathy [Unknown]
  - Dyspepsia [Recovered/Resolved]
  - Haemorrhage [Recovered/Resolved]
